FAERS Safety Report 21349326 (Version 3)
Quarter: 2022Q4

REPORT INFORMATION
  Report Type: Other
  Country: US (occurrence: None)
  Receive Date: 20220919
  Receipt Date: 20221019
  Transmission Date: 20230113
  Serious: No
  Sender: FDA-Public Use
  Company Number: US-ROCHE-3180857

PATIENT
  Age: 53 Year
  Sex: Female
  Weight: 63.560 kg

DRUGS (3)
  1. OCREVUS [Suspect]
     Active Substance: OCRELIZUMAB
     Indication: Relapsing multiple sclerosis
     Dosage: INFUSE 600MG INTRAVENOUSLY EVERY 6 MONTHS? DOT: 03/APR/2018, 24/APR/2018, 23/OCT/2018, 22/FEB/2022
     Route: 042
     Dates: start: 2019
  2. BACLOFEN [Concomitant]
     Active Substance: BACLOFEN
  3. LINZESS [Concomitant]
     Active Substance: LINACLOTIDE

REACTIONS (3)
  - COVID-19 [Recovered/Resolved]
  - B-lymphocyte abnormalities [Not Recovered/Not Resolved]
  - Gait disturbance [Recovered/Resolved]

NARRATIVE: CASE EVENT DATE: 20220801
